FAERS Safety Report 6684885-4 (Version None)
Quarter: 2010Q2

REPORT INFORMATION
  Report Type: 
  Country: None (occurrence: None)
  Receive Date: 20100416
  Receipt Date: 20100406
  Transmission Date: 20101027
  Serious: Yes (Hospitalization)
  Sender: FDA-Public Use
  Company Number: US-JNJFOC-20100403532

PATIENT
  Age: 12 Month
  Sex: Male

DRUGS (2)
  1. CHILDRENS TYLENOL [Suspect]
     Route: 048
  2. CHILDRENS TYLENOL [Suspect]
     Indication: DRUG USE FOR UNKNOWN INDICATION
     Route: 048

REACTIONS (3)
  - CELLULITIS STAPHYLOCOCCAL [None]
  - PRODUCT QUALITY ISSUE [None]
  - STAPHYLOCOCCAL INFECTION [None]
